FAERS Safety Report 9799020 (Version 1)
Quarter: 2014Q1

REPORT INFORMATION
  Report Type: Spontaneous
  Country: US (occurrence: US)
  Receive Date: 20140106
  Receipt Date: 20140106
  Transmission Date: 20141002
  Serious: No
  Sender: FDA-Public Use
  Company Number: US-GILEAD-2010-0032391

PATIENT
  Age: 12 Year
  Sex: Male
  Weight: 35.83 kg

DRUGS (7)
  1. LETAIRIS [Suspect]
     Indication: PULMONARY ARTERIAL HYPERTENSION
     Route: 048
     Dates: start: 20100915
  2. ADCIRCA [Concomitant]
  3. FLOLAN [Concomitant]
  4. LASIX [Concomitant]
  5. ASPIRIN [Concomitant]
  6. OXYGEN [Concomitant]
  7. ZANTAC [Concomitant]

REACTIONS (2)
  - Skin discolouration [Unknown]
  - Flushing [Unknown]
